FAERS Safety Report 23473728 (Version 2)
Quarter: 2024Q2

REPORT INFORMATION
  Report Type: Report from Study
  Country: US (occurrence: US)
  Receive Date: 20240203
  Receipt Date: 20240426
  Transmission Date: 20240716
  Serious: Yes (Hospitalization, Other)
  Sender: FDA-Public Use
  Company Number: US-TAKEDA-US201800509

PATIENT
  Sex: Male

DRUGS (8)
  1. TEDUGLUTIDE [Suspect]
     Active Substance: TEDUGLUTIDE
     Indication: Short-bowel syndrome
     Dosage: 4.0 MILLIGRAM, QD
     Route: 058
     Dates: start: 20161010
  2. TEDUGLUTIDE [Suspect]
     Active Substance: TEDUGLUTIDE
     Indication: Short-bowel syndrome
     Dosage: 4.0 MILLIGRAM, QD
     Route: 058
     Dates: start: 20161010
  3. TEDUGLUTIDE [Suspect]
     Active Substance: TEDUGLUTIDE
     Indication: Short-bowel syndrome
     Dosage: 4.0 MILLIGRAM, QD
     Route: 058
     Dates: start: 20161010
  4. TEDUGLUTIDE [Suspect]
     Active Substance: TEDUGLUTIDE
     Indication: Short-bowel syndrome
     Dosage: 4.0 MILLIGRAM, QD
     Route: 058
     Dates: start: 20161010
  5. TEDUGLUTIDE [Suspect]
     Active Substance: TEDUGLUTIDE
     Dosage: 4.0 MILLIGRAM, QD
     Route: 058
     Dates: start: 20161016
  6. TEDUGLUTIDE [Suspect]
     Active Substance: TEDUGLUTIDE
     Dosage: 4.0 MILLIGRAM, QD
     Route: 058
     Dates: start: 20161016
  7. TEDUGLUTIDE [Suspect]
     Active Substance: TEDUGLUTIDE
     Dosage: 4.0 MILLIGRAM, QD
     Route: 058
     Dates: start: 20161016
  8. TEDUGLUTIDE [Suspect]
     Active Substance: TEDUGLUTIDE
     Dosage: 4.0 MILLIGRAM, QD
     Route: 058
     Dates: start: 20161016

REACTIONS (1)
  - Crohn^s disease [Recovering/Resolving]
